FAERS Safety Report 10021332 (Version 2)
Quarter: 2014Q3

REPORT INFORMATION
  Report Type: Spontaneous
  Country: JP (occurrence: JP)
  Receive Date: 20140319
  Receipt Date: 20140723
  Transmission Date: 20150326
  Serious: Yes (Other)
  Sender: FDA-Public Use
  Company Number: JP-MALLINCKRODT-T201401588

PATIENT
  Age: 65 Year
  Sex: Male
  Weight: 34.5 kg

DRUGS (16)
  1. ALDACTONE [Concomitant]
     Active Substance: SPIRONOLACTONE
     Dosage: 50 MG, UNK
     Route: 048
     Dates: end: 20130906
  2. NOVAMIN                            /00013301/ [Concomitant]
     Active Substance: PROCHLORPERAZINE MALEATE
     Dosage: 10 MG, UNK
     Route: 048
     Dates: start: 20130829, end: 20130906
  3. LOXONIN [Concomitant]
     Active Substance: LOXOPROFEN SODIUM
     Dosage: 180 MG, UNK
     Route: 048
     Dates: end: 20130906
  4. METHADONE [Suspect]
     Active Substance: METHADONE HYDROCHLORIDE
     Indication: CANCER PAIN
     Dosage: 10 MG, (DAILY DOSE 30 MG)
     Route: 048
     Dates: start: 20130829, end: 20130906
  5. TAKEPRON [Concomitant]
     Active Substance: LANSOPRAZOLE
     Dosage: 30 MG, UNK
     Route: 051
     Dates: start: 20130907
  6. LASIX [Concomitant]
     Active Substance: FUROSEMIDE
     Dosage: 40 MG, UNK
     Route: 048
     Dates: end: 20130906
  7. METHADONE [Suspect]
     Active Substance: METHADONE HYDROCHLORIDE
     Dosage: 20 MG, (DAILY DOSE 60 MG)
     Route: 048
     Dates: start: 20130925, end: 20130926
  8. OXYNORM [Concomitant]
     Active Substance: OXYCODONE HYDROCHLORIDE
     Dosage: 50 MG, PRN
     Route: 048
     Dates: start: 20130829
  9. INTRALIPOS [Concomitant]
     Active Substance: SOYBEAN OIL
     Dosage: 250 ML, UNK
     Route: 042
     Dates: start: 20130808
  10. SANDOSTATIN [Concomitant]
     Active Substance: OCTREOTIDE ACETATE
     Dosage: 300 UG, UNK
     Route: 051
     Dates: start: 20130828
  11. FINIBAX [Concomitant]
     Active Substance: DORIPENEM MONOHYDRATE
     Dosage: 3 G, UNK
     Route: 051
     Dates: start: 20130826, end: 20130830
  12. TAKEPRON [Concomitant]
     Active Substance: LANSOPRAZOLE
     Dosage: 30 MG, UNK
     Route: 048
     Dates: end: 20130906
  13. U PAN [Concomitant]
     Active Substance: LORAZEPAM
     Dosage: 1 MG, UNK
     Route: 048
     Dates: end: 20130906
  14. METHADONE [Suspect]
     Active Substance: METHADONE HYDROCHLORIDE
     Dosage: 10 MG, (DAILY DOSE 30 MG)
     Route: 048
     Dates: start: 20130910, end: 20130916
  15. METHADONE [Suspect]
     Active Substance: METHADONE HYDROCHLORIDE
     Dosage: 15 MG, (DAILY DOSE 45 MG)
     Route: 048
     Dates: start: 20130917, end: 20130924
  16. GABAPEN [Concomitant]
     Active Substance: GABAPENTIN
     Dosage: 800 MG, UNK
     Route: 048
     Dates: start: 20130809, end: 20130906

REACTIONS (1)
  - Ileus [Recovering/Resolving]

NARRATIVE: CASE EVENT DATE: 20130907
